FAERS Safety Report 23951913 (Version 1)
Quarter: 2024Q2

REPORT INFORMATION
  Report Type: Spontaneous
  Country: US (occurrence: US)
  Receive Date: 20240607
  Receipt Date: 20240607
  Transmission Date: 20240716
  Serious: Yes (Other)
  Sender: FDA-Public Use
  Company Number: US-BRISTOL-MYERS SQUIBB COMPANY-2024-092132

PATIENT
  Age: 86 Year
  Sex: Female
  Weight: 57.15 kg

DRUGS (3)
  1. ELIQUIS [Suspect]
     Active Substance: APIXABAN
     Indication: Atrial fibrillation
     Route: 048
     Dates: start: 202306
  2. ELIQUIS [Suspect]
     Active Substance: APIXABAN
     Indication: Heart valve incompetence
  3. ASPIRIN [Concomitant]
     Active Substance: ASPIRIN
     Indication: Product used for unknown indication

REACTIONS (3)
  - Urinary incontinence [Unknown]
  - Skin cancer [Unknown]
  - Off label use [Unknown]
